FAERS Safety Report 6269248-8 (Version None)
Quarter: 2009Q3

REPORT INFORMATION
  Report Type: 
  Country: None (occurrence: None)
  Receive Date: 20090715
  Receipt Date: 20090528
  Transmission Date: 20100115
  Serious: Yes (Hospitalization)
  Sender: FDA-Public Use
  Company Number: US-PURDUE-USA-2009-0038746

PATIENT
  Sex: Male

DRUGS (4)
  1. OXYCONTIN [Suspect]
     Indication: TRIGEMINAL NEURALGIA
     Dosage: 80 MG, TID
     Dates: start: 19990731, end: 20021217
  2. OXYCONTIN [Suspect]
     Indication: ANALGESIA
  3. VERAPAMIL [Concomitant]
  4. LIPITOR [Concomitant]

REACTIONS (4)
  - DEPRESSION [None]
  - DRUG DEPENDENCE [None]
  - HALLUCINATION [None]
  - SUICIDAL IDEATION [None]
